FAERS Safety Report 8485833-7 (Version None)
Quarter: 2012Q3

REPORT INFORMATION
  Report Type: 
  Country: None (occurrence: None)
  Receive Date: 20120703
  Receipt Date: 20120626
  Transmission Date: 20120928
  Serious: Yes (Hospitalization, Other)
  Sender: FDA-Public Use
  Company Number: PHHY2012JP047658

PATIENT
  Sex: Female

DRUGS (3)
  1. GILENYA [Suspect]
     Indication: MULTIPLE SCLEROSIS RELAPSE
     Dosage: 0.5 MG, DAILY
     Route: 048
     Dates: start: 20120303, end: 20120404
  2. GILENYA [Suspect]
     Dosage: 0.25 MG, QOD
     Route: 048
     Dates: start: 20120405, end: 20120524
  3. STEROIDS NOS [Concomitant]
     Dosage: 1000 MG, DAILY
     Route: 051
     Dates: start: 20110320, end: 20110801

REACTIONS (4)
  - GAIT DISTURBANCE [None]
  - LYMPHOCYTE COUNT DECREASED [None]
  - INAPPROPRIATE SCHEDULE OF DRUG ADMINISTRATION [None]
  - CENTRAL NERVOUS SYSTEM LESION [None]
